FAERS Safety Report 4476473-5 (Version None)
Quarter: 2004Q4

REPORT INFORMATION
  Report Type: 
  Country: None (occurrence: None)
  Receive Date: 20041012
  Receipt Date: 20040924
  Transmission Date: 20050328
  Serious: Yes (Hospitalization)
  Sender: FDA-Public Use
  Company Number: 239507

PATIENT
  Age: 58 Year
  Sex: Female

DRUGS (2)
  1. VAGIFEM [Suspect]
     Indication: VULVOVAGINAL DRYNESS
     Dosage: 1 TAB, BIW, VAGINAL
     Route: 067
     Dates: start: 20040501, end: 20040801
  2. FOSAMAX [Concomitant]

REACTIONS (3)
  - CHOLECYSTITIS [None]
  - PAIN [None]
  - URINARY TRACT INFECTION BACTERIAL [None]
